FAERS Safety Report 15379010 (Version 1)
Quarter: 2018Q3

REPORT INFORMATION
  Report Type: Spontaneous
  Country: US (occurrence: US)
  Receive Date: 20180913
  Receipt Date: 20180913
  Transmission Date: 20181010
  Serious: Yes (Life-Threatening)
  Sender: FDA-Public Use
  Company Number: US-ELI_LILLY_AND_COMPANY-US201809003799

PATIENT
  Sex: Female

DRUGS (2)
  1. CYMBALTA [Suspect]
     Active Substance: DULOXETINE HYDROCHLORIDE
     Dosage: 10 MG, UNKNOWN
     Route: 065
     Dates: start: 2007
  2. CYMBALTA [Suspect]
     Active Substance: DULOXETINE HYDROCHLORIDE
     Indication: PRODUCT USED FOR UNKNOWN INDICATION
     Dosage: 20 MG, UNKNOWN
     Route: 065

REACTIONS (8)
  - Feeling abnormal [Unknown]
  - Nausea [Unknown]
  - Headache [Unknown]
  - Drug withdrawal syndrome [Unknown]
  - Suicide attempt [Unknown]
  - Depression [Unknown]
  - Psychotic disorder [Unknown]
  - Drug dependence [Unknown]

NARRATIVE: CASE EVENT DATE: 2007
